FAERS Safety Report 15060229 (Version 1)
Quarter: 2018Q2

REPORT INFORMATION
  Report Type: Spontaneous
  Country: US (occurrence: US)
  Receive Date: 20180625
  Receipt Date: 20180625
  Transmission Date: 20180711
  Serious: Yes (Hospitalization)
  Sender: FDA-Public Use
  Company Number: US-MYLANLABS-2018M1044382

PATIENT
  Age: 8 Decade
  Sex: Male

DRUGS (2)
  1. VALGANCICLOVIR. [Concomitant]
     Active Substance: VALGANCICLOVIR
     Indication: ANTIVIRAL PROPHYLAXIS
     Route: 065
  2. TACROLIMUS. [Suspect]
     Active Substance: TACROLIMUS
     Indication: IMMUNOSUPPRESSANT DRUG THERAPY
     Route: 065

REACTIONS (5)
  - Cardiac output decreased [Recovering/Resolving]
  - Hypoxia [Unknown]
  - Pleural effusion [Unknown]
  - Cytomegalovirus myocarditis [Recovering/Resolving]
  - Left ventricular hypertrophy [Not Recovered/Not Resolved]
